FAERS Safety Report 26097644 (Version 1)
Quarter: 2025Q4

REPORT INFORMATION
  Report Type: Report from Study
  Country: US (occurrence: US)
  Receive Date: 20251127
  Receipt Date: 20251127
  Transmission Date: 20260117
  Serious: No
  Sender: MALLINCKRODT
  Company Number: US-MALLINCKRODT-MNK202507532

PATIENT
  Age: 67 Year
  Sex: Female

DRUGS (1)
  1. CORTICOTROPIN [Suspect]
     Active Substance: CORTICOTROPIN
     Indication: Orbital myositis
     Dosage: 40 UNITS
     Route: 058
     Dates: start: 20251120

REACTIONS (1)
  - Fear [Unknown]

NARRATIVE: CASE EVENT DATE: 20251101
